FAERS Safety Report 4300814-2 (Version None)
Quarter: 2004Q1

REPORT INFORMATION
  Report Type: 
  Country: None (occurrence: None)
  Receive Date: 20040218
  Receipt Date: 20040204
  Transmission Date: 20041129
  Serious: Yes (Hospitalization)
  Sender: FDA-Public Use
  Company Number: NSADSS2001039301

PATIENT
  Age: 19 Year
  Sex: Male

DRUGS (5)
  1. REMICADE [Suspect]
     Indication: CROHN'S DISEASE
     Dosage: SEE IMAGE
     Route: 041
     Dates: start: 20000501
  2. MEDROL [Concomitant]
  3. SOLU-CORTEF [Concomitant]
  4. BENADRYL [Concomitant]
  5. TYLENOL [Concomitant]

REACTIONS (5)
  - ABASIA [None]
  - ARTHRALGIA [None]
  - HYPOAESTHESIA [None]
  - PAIN [None]
  - RASH [None]
